FAERS Safety Report 9955827 (Version 1)
Quarter: 2014Q1

REPORT INFORMATION
  Report Type: Report from Study
  Country: US (occurrence: US)
  Receive Date: 20140304
  Receipt Date: 20140304
  Transmission Date: 20141002
  Serious: No
  Sender: FDA-Public Use
  Company Number: US-ABBVIE-13P-163-1090028-00

PATIENT
  Age: 57 Year
  Sex: Male

DRUGS (12)
  1. HUMIRA [Suspect]
     Indication: CROHN^S DISEASE
     Dates: start: 20130510
  2. SYNTHYROID [Concomitant]
     Indication: HYPOTHYROIDISM
     Dosage: 0.25 DAILY
     Route: 048
  3. IMODIUM [Concomitant]
     Indication: DIARRHOEA
     Dosage: 8 MG DAILY
     Route: 048
  4. LOMOTIL [Concomitant]
     Indication: DIARRHOEA
     Dosage: 8 MG DAILY
     Route: 048
  5. METFORMIN [Concomitant]
     Indication: DIABETES MELLITUS
     Dosage: DAILY
  6. BENADRYL [Concomitant]
     Indication: INSOMNIA
     Dosage: 50 MG DAILY AT BEDTIME
     Route: 048
  7. VISTARIL [Concomitant]
     Indication: ANXIETY
     Route: 048
  8. EFFEXOR [Concomitant]
     Indication: DEPRESSION
     Route: 048
  9. ABILIFY [Concomitant]
     Indication: DEPRESSION
     Dosage: 10 MG DAILY
     Route: 048
  10. GABAPENTIN [Concomitant]
     Indication: ANALGESIC THERAPY
     Route: 048
  11. OMEPRAZOLE [Concomitant]
     Indication: GASTROOESOPHAGEAL REFLUX DISEASE
  12. FUNGICIDE [Concomitant]
     Indication: CANDIDA INFECTION
     Dosage: DAILY
     Route: 048

REACTIONS (5)
  - Fatigue [Not Recovered/Not Resolved]
  - Restlessness [Not Recovered/Not Resolved]
  - Gastrointestinal pain [Not Recovered/Not Resolved]
  - Headache [Not Recovered/Not Resolved]
  - Aphagia [Not Recovered/Not Resolved]
